FAERS Safety Report 9392204 (Version 2)
Quarter: 2013Q3

REPORT INFORMATION
  Report Type: Report from Study
  Country: US (occurrence: US)
  Receive Date: 20130710
  Receipt Date: 20130926
  Transmission Date: 20140515
  Serious: Yes (Other)
  Sender: FDA-Public Use
  Company Number: US-ALEXION PHARMACEUTICALS INC.-A201301548

PATIENT
  Sex: Male
  Weight: 45 kg

DRUGS (2)
  1. SOLIRIS [Suspect]
     Indication: HAEMOLYTIC URAEMIC SYNDROME
     Dosage: 1200 MG, Q2W
     Route: 042
  2. RITUXIMAB [Concomitant]
     Dosage: UNK

REACTIONS (3)
  - Hepatic failure [Unknown]
  - Mechanical ventilation [Unknown]
  - Dialysis [Unknown]
